FAERS Safety Report 17659438 (Version 1)
Quarter: 2020Q2

REPORT INFORMATION
  Report Type: Spontaneous
  Country: US (occurrence: US)
  Receive Date: 20200413
  Receipt Date: 20200413
  Transmission Date: 20200713
  Serious: No
  Sender: FDA-Public Use
  Company Number: US-BION-008469

PATIENT
  Age: 49 Year
  Sex: Female

DRUGS (2)
  1. ALEVE [Suspect]
     Active Substance: NAPROXEN SODIUM
     Indication: PAIN
     Route: 048
     Dates: start: 20191222, end: 20191223
  2. WELLBUTRIN [Concomitant]
     Active Substance: BUPROPION HYDROCHLORIDE

REACTIONS (3)
  - Product physical issue [Unknown]
  - Tongue discomfort [Recovered/Resolved]
  - Product taste abnormal [Unknown]

NARRATIVE: CASE EVENT DATE: 20191223
